FAERS Safety Report 23280890 (Version 2)
Quarter: 2024Q1

REPORT INFORMATION
  Report Type: Spontaneous
  Country: US (occurrence: US)
  Receive Date: 20231211
  Receipt Date: 20240320
  Transmission Date: 20240410
  Serious: No
  Sender: FDA-Public Use
  Company Number: US-NOVEN PHARMACEUTICALS, INC.-2023-NOV-US000125

PATIENT
  Sex: Female
  Weight: 72.562 kg

DRUGS (6)
  1. ESTRADIOL [Suspect]
     Active Substance: ESTRADIOL
     Indication: Affective disorder
     Dosage: 0.025 MG, 4.5 DAYS
     Route: 062
     Dates: start: 202212
  2. ESTRADIOL [Suspect]
     Active Substance: ESTRADIOL
     Indication: Emotional disorder
     Dosage: 0.0375 MG, UNKNOWN
     Route: 062
     Dates: start: 2022
  3. ESTRADIOL [Suspect]
     Active Substance: ESTRADIOL
     Indication: Arthropathy
     Dosage: 0.025 MG, UNKNOWN
     Route: 062
     Dates: start: 2022
  4. ESTRADIOL [Suspect]
     Active Substance: ESTRADIOL
     Indication: Dry eye
  5. ESTRADIOL [Suspect]
     Active Substance: ESTRADIOL
     Indication: Off label use
  6. PROGESTERONE [Concomitant]
     Active Substance: PROGESTERONE
     Indication: Product used for unknown indication
     Dosage: UNK, UNKNOWN
     Route: 048

REACTIONS (11)
  - Pelvic pain [Recovered/Resolved]
  - Back pain [Recovered/Resolved]
  - Adhesive tape use [Not Recovered/Not Resolved]
  - Wrong technique in product usage process [Not Recovered/Not Resolved]
  - Device difficult to use [Not Recovered/Not Resolved]
  - Exposure via direct contact [Recovered/Resolved]
  - Intentional product use issue [Not Recovered/Not Resolved]
  - Product adhesion issue [Not Recovered/Not Resolved]
  - Device issue [Not Recovered/Not Resolved]
  - Device adhesion issue [Not Recovered/Not Resolved]
  - Off label use [Not Recovered/Not Resolved]

NARRATIVE: CASE EVENT DATE: 20220101
